FAERS Safety Report 24028289 (Version 1)
Quarter: 2024Q2

REPORT INFORMATION
  Report Type: Spontaneous
  Country: FR (occurrence: FR)
  Receive Date: 20240628
  Receipt Date: 20240628
  Transmission Date: 20240716
  Serious: Yes (Hospitalization)
  Sender: FDA-Public Use
  Company Number: None

PATIENT
  Age: 68 Year
  Sex: Female
  Weight: 59 kg

DRUGS (9)
  1. MITOMYCIN [Suspect]
     Active Substance: MITOMYCIN
     Indication: Anal cancer stage 0
     Dosage: CURE 1
     Dates: start: 20230427
  2. FENOFIBRATE [Concomitant]
     Active Substance: FENOFIBRATE
  3. METFORMIN [Concomitant]
     Active Substance: METFORMIN HYDROCHLORIDE
  4. FLUOROURACIL [Concomitant]
     Active Substance: FLUOROURACIL
     Indication: Anal cancer stage 0
     Dosage: TREATMENT 2 (LAST)
     Dates: start: 20230525, end: 202405
  5. OXYCODONE HYDROCHLORIDE [Concomitant]
     Active Substance: OXYCODONE HYDROCHLORIDE
  6. KARDEGIC [Concomitant]
     Active Substance: ASPIRIN DL-LYSINE
     Dosage: 75 MG, POWDER FOR ORAL SOLUTION IN SACHET-DOSE
  7. CHOLECALCIFEROL [Concomitant]
     Active Substance: CHOLECALCIFEROL
  8. FLUOROURACIL [Concomitant]
     Active Substance: FLUOROURACIL
     Indication: Anal cancer stage 0
     Dosage: TREATMENT 1
     Dates: start: 20230427, end: 202404
  9. MITOMYCIN [Suspect]
     Active Substance: MITOMYCIN
     Indication: Anal cancer stage 0
     Dosage: TREATMENT 2 (LAST)
     Dates: start: 20230525

REACTIONS (1)
  - Pulmonary veno-occlusive disease [Not Recovered/Not Resolved]

NARRATIVE: CASE EVENT DATE: 20230818
